FAERS Safety Report 7281288-9 (Version None)
Quarter: 2011Q1

REPORT INFORMATION
  Report Type: 
  Country: None (occurrence: None)
  Receive Date: 20110203
  Receipt Date: 20110203
  Transmission Date: 20110831
  Serious: No
  Sender: FDA-Public Use
  Company Number: None

PATIENT
  Sex: Female
  Weight: 72.5755 kg

DRUGS (1)
  1. LEVAQUIN [Suspect]
     Indication: OROPHARYNGEAL PAIN
     Dosage: 500 MG 1 PER DAY PO
     Route: 048
     Dates: start: 20100519, end: 20100528

REACTIONS (1)
  - ARTHRALGIA [None]
